FAERS Safety Report 6593807-6 (Version None)
Quarter: 2010Q1

REPORT INFORMATION
  Report Type: 
  Country: None (occurrence: None)
  Receive Date: 20100212
  Receipt Date: 20100201
  Transmission Date: 20100710
  Serious: Yes (Hospitalization)
  Sender: FDA-Public Use
  Company Number: 2010SP006482

PATIENT
  Age: 30 Year
  Sex: Female
  Weight: 56 kg

DRUGS (10)
  1. REBETOL [Suspect]
     Indication: HEPATITIS C
     Dosage: 800 MG;QD;PO
     Route: 048
     Dates: start: 20090115, end: 20090122
  2. PEGASYS [Suspect]
     Indication: HEPATITIS C
     Dosage: 135 MCG;QW;SC
     Route: 058
     Dates: start: 20080901, end: 20081230
  3. PEGASYS [Suspect]
     Indication: HEPATITIS C
     Dosage: 135 MCG;QW;SC
     Route: 058
     Dates: start: 20090115, end: 20090122
  4. PEGASYS [Suspect]
     Indication: HEPATITIS C
     Dosage: 135 MCG;QW;SC
     Route: 058
     Dates: start: 20090115, end: 20090122
  5. COPEGUS (RIBAVIRIN / 0081670/) [Suspect]
     Indication: HEPATITIS C
     Dosage: PO
     Route: 048
     Dates: start: 20080901, end: 20081230
  6. TERCIAN (CON.) [Concomitant]
  7. LAROXYL (CON.) [Concomitant]
  8. LEPTICUR (CON.) [Concomitant]
  9. INTERFERON (PREV.) [Concomitant]
  10. IMPLANON (CON.) [Concomitant]

REACTIONS (3)
  - PERSECUTORY DELUSION [None]
  - REFUSAL OF TREATMENT BY PATIENT [None]
  - UNEVALUABLE EVENT [None]
